FAERS Safety Report 5152208-8 (Version None)
Quarter: 2006Q4

REPORT INFORMATION
  Report Type: 
  Country: None (occurrence: None)
  Receive Date: 20061116
  Receipt Date: 20061107
  Transmission Date: 20070319
  Serious: Yes (Life-Threatening, Hospitalization, Disabling)
  Sender: FDA-Public Use
  Company Number: US-KINGPHARMUSA00001-K200601414

PATIENT
  Sex: Female

DRUGS (9)
  1. ALTACE [Suspect]
     Dosage: 5 MG, QD
     Route: 048
     Dates: start: 20060706, end: 20060801
  2. ALTACE [Suspect]
     Dosage: 7.5 MG, QD
     Route: 048
     Dates: start: 20060801, end: 20060807
  3. VANCOMYCIN [Suspect]
     Dosage: 2 G, QD
     Route: 042
     Dates: start: 20060709, end: 20060817
  4. CEFOTAXIME [Concomitant]
     Indication: INFECTION
     Dosage: 3 G, UNK
     Route: 042
     Dates: start: 20060710, end: 20060729
  5. CIPROFLOXACIN [Concomitant]
     Indication: INFECTION
     Dosage: 1000 MG, UNK
     Route: 048
     Dates: start: 20060729, end: 20060811
  6. FLUCLOXACILLIN [Concomitant]
     Indication: INFECTION
     Dosage: 2000 MG, UNK
     Route: 048
     Dates: start: 20060708, end: 20060709
  7. GLIMEPIRIDE [Concomitant]
     Indication: DIABETES MELLITUS
     Dosage: 3 MG, UNK
     Route: 048
  8. METFORMIN [Concomitant]
     Indication: DIABETES MELLITUS
     Dosage: 1 G, UNK
     Route: 048
  9. PREGABALIN [Concomitant]
     Dosage: 150 MG, UNK
     Route: 048

REACTIONS (4)
  - BLOOD CREATININE INCREASED [None]
  - C-REACTIVE PROTEIN INCREASED [None]
  - PYREXIA [None]
  - RASH GENERALISED [None]
